FAERS Safety Report 25527167 (Version 1)
Quarter: 2025Q3

REPORT INFORMATION
  Report Type: Spontaneous
  Country: US (occurrence: US)
  Receive Date: 20250708
  Receipt Date: 20250708
  Transmission Date: 20251020
  Serious: No
  Sender: SANOFI AVENTIS
  Company Number: US-SANOFI-02577358

PATIENT
  Age: 80 Year
  Sex: Male

DRUGS (1)
  1. KEVZARA [Suspect]
     Active Substance: SARILUMAB
     Indication: Polymyalgia rheumatica

REACTIONS (4)
  - Infrequent bowel movements [Not Recovered/Not Resolved]
  - Injection site rash [Recovered/Resolved]
  - Decreased appetite [Not Recovered/Not Resolved]
  - Injection site erythema [Recovered/Resolved]
